FAERS Safety Report 9433585 (Version 1)
Quarter: 2013Q3

REPORT INFORMATION
  Report Type: Report from Study
  Country: US (occurrence: US)
  Receive Date: 20130731
  Receipt Date: 20130731
  Transmission Date: 20140515
  Serious: Yes (Congenital Anomaly, Other)
  Sender: FDA-Public Use
  Company Number: US-MYLANLABS-2013S1016563

PATIENT
  Sex: 0

DRUGS (4)
  1. DOCETAXEL [Suspect]
     Indication: BREAST CANCER STAGE III
     Route: 064
  2. PACLITAXEL [Suspect]
     Indication: BREAST CANCER STAGE III
     Route: 064
  3. DOXORUBICIN [Suspect]
     Indication: BREAST CANCER STAGE III
     Route: 064
  4. CYCLOPHOSPHAMIDE [Suspect]
     Indication: BREAST CANCER STAGE III
     Route: 064

REACTIONS (3)
  - Neutropenia neonatal [Unknown]
  - Pyloric stenosis [Recovered/Resolved]
  - Foetal exposure during pregnancy [Recovered/Resolved]
